FAERS Safety Report 24669308 (Version 1)
Quarter: 2024Q4

REPORT INFORMATION
  Report Type: Report from Study
  Country: US (occurrence: US)
  Receive Date: 20241127
  Receipt Date: 20241127
  Transmission Date: 20250114
  Serious: Yes (Other)
  Sender: AUROBINDO
  Company Number: US-AUROBINDO-AUR-APL-2024-056868

PATIENT
  Sex: Female

DRUGS (1)
  1. PROGESTERONE [Suspect]
     Active Substance: PROGESTERONE
     Indication: Luteal phase deficiency
     Dosage: UNK
     Route: 065

REACTIONS (3)
  - Abortion spontaneous [Unknown]
  - Drug ineffective [Unknown]
  - Exposure during pregnancy [Unknown]
